FAERS Safety Report 12772887 (Version 2)
Quarter: 2016Q4

REPORT INFORMATION
  Report Type: Spontaneous
  Country: US (occurrence: US)
  Receive Date: 20160922
  Receipt Date: 20161019
  Transmission Date: 20170207
  Serious: Yes (Other)
  Sender: FDA-Public Use
  Company Number: US-TEVA-694234USA

PATIENT
  Age: 72 Year
  Sex: Male

DRUGS (4)
  1. MYRBETRIQ [Interacting]
     Active Substance: MIRABEGRON
     Dosage: 25 MILLIGRAM DAILY;
     Route: 065
     Dates: start: 20160718
  2. MYRBETRIQ [Interacting]
     Active Substance: MIRABEGRON
     Indication: BLADDER DISORDER
     Dosage: 50 MILLIGRAM DAILY;
     Route: 065
  3. AMLODIPINE W/BENAZEPRIL [Suspect]
     Active Substance: AMLODIPINE BESYLATE\BENAZEPRIL HYDROCHLORIDE
     Indication: BLOOD PRESSURE ABNORMAL
     Dosage: 5/20MG
     Route: 065
  4. CARVEDILOL. [Suspect]
     Active Substance: CARVEDILOL
     Indication: BLOOD PRESSURE ABNORMAL
     Dosage: 12.5 MILLIGRAM DAILY;
     Route: 065

REACTIONS (2)
  - Blood pressure decreased [Recovered/Resolved]
  - Drug interaction [Unknown]

NARRATIVE: CASE EVENT DATE: 20160719
